FAERS Safety Report 4831049-2 (Version None)
Quarter: 2005Q4

REPORT INFORMATION
  Report Type: 
  Country: None (occurrence: None)
  Receive Date: 20051115
  Receipt Date: 20051115
  Transmission Date: 20060501
  Serious: Yes (Other)
  Sender: FDA-Public Use
  Company Number: None

PATIENT
  Sex: Male
  Weight: 79.3795 kg

DRUGS (2)
  1. ZICAM   MATRIX INITIATIVES, INC. [Suspect]
     Indication: NASOPHARYNGITIS
     Dosage: 2 SPRAYS PER NOSTRIL  ONCE NASAL
     Route: 045
     Dates: start: 20051113, end: 20051113
  2. ZICAM   MATRIX INITIATIVES, INC. [Suspect]
     Indication: PROPHYLAXIS
     Dosage: 2 SPRAYS PER NOSTRIL  ONCE NASAL
     Route: 045
     Dates: start: 20051113, end: 20051113

REACTIONS (4)
  - AGEUSIA [None]
  - ANOSMIA [None]
  - HEADACHE [None]
  - RHINALGIA [None]
